FAERS Safety Report 18550852 (Version 2)
Quarter: 2020Q4

REPORT INFORMATION
  Report Type: Spontaneous
  Country: MM (occurrence: MM)
  Receive Date: 20201126
  Receipt Date: 20201204
  Transmission Date: 20210114
  Serious: Yes (Death, Other)
  Sender: FDA-Public Use
  Company Number: MM-ROCHE-2720601

PATIENT
  Age: 58 Year
  Sex: Male

DRUGS (1)
  1. AVASTIN [Suspect]
     Active Substance: BEVACIZUMAB
     Indication: HEPATIC CANCER
     Dosage: AVASTIN (400MG/16ML)
     Route: 042
     Dates: start: 20200903

REACTIONS (1)
  - COVID-19 [Unknown]
